FAERS Safety Report 8322426-6 (Version None)
Quarter: 2012Q2

REPORT INFORMATION
  Report Type: 
  Country: None (occurrence: None)
  Receive Date: 20120427
  Receipt Date: 20120406
  Transmission Date: 20120825
  Serious: Yes (Other)
  Sender: FDA-Public Use
  Company Number: 001191032A

PATIENT
  Age: 32 Year
  Sex: Male

DRUGS (1)
  1. PROACTIV [Suspect]
     Indication: ACNE
     Dosage: 1 DOSE DERMAL BID
     Dates: start: 20111017, end: 20120405

REACTIONS (1)
  - DRUG HYPERSENSITIVITY [None]
